FAERS Safety Report 5338773-6 (Version None)
Quarter: 2007Q2

REPORT INFORMATION
  Report Type: 
  Country: None (occurrence: None)
  Receive Date: 20070328
  Receipt Date: 20060228
  Transmission Date: 20071010
  Serious: Yes (Hospitalization)
  Sender: FDA-Public Use
  Company Number: K200600280

PATIENT
  Age: 33 Year
  Sex: Male

DRUGS (2)
  1. ALTACE [Suspect]
     Indication: GLOMERULOSCLEROSIS
     Dosage: 5 MG, QD
     Dates: start: 20051101, end: 20060209
  2. LEXAPRO [Suspect]
     Indication: DEPRESSION
     Dosage: 20 MG, QD, ORAL
     Route: 048
     Dates: start: 20040201, end: 20060212

REACTIONS (1)
  - PYREXIA [None]
